FAERS Safety Report 17573331 (Version 2)
Quarter: 2020Q2

REPORT INFORMATION
  Report Type: Spontaneous
  Country: US (occurrence: US)
  Receive Date: 20200323
  Receipt Date: 20200506
  Transmission Date: 20200713
  Serious: No
  Sender: FDA-Public Use
  Company Number: US-BRISTOL-MYERS SQUIBB COMPANY-BMS-2020-024428

PATIENT
  Sex: Female

DRUGS (1)
  1. COUMADIN [Suspect]
     Active Substance: WARFARIN SODIUM
     Indication: PULMONARY EMBOLISM
     Dosage: 5 MILLIGRAM
     Route: 048
     Dates: start: 20200303, end: 20200313

REACTIONS (3)
  - Hypoaesthesia [Unknown]
  - Abdominal pain [Unknown]
  - Paraesthesia [Unknown]
